FAERS Safety Report 17226442 (Version 6)
Quarter: 2020Q2

REPORT INFORMATION
  Report Type: Spontaneous
  Country: US (occurrence: US)
  Receive Date: 20200102
  Receipt Date: 20200617
  Transmission Date: 20200713
  Serious: Yes (Hospitalization)
  Sender: FDA-Public Use
  Company Number: US-PFIZER INC-2019562337

PATIENT
  Age: 81 Year
  Sex: Female
  Weight: 73.94 kg

DRUGS (6)
  1. METOPROLOL. [Concomitant]
     Active Substance: METOPROLOL
     Dosage: 50 MG, UNK
  2. FUROSEMIDE. [Concomitant]
     Active Substance: FUROSEMIDE
     Dosage: 40 MG, UNK
  3. FERROUS [IRON] [Suspect]
     Active Substance: IRON
     Dosage: 325 MG, UNK
  4. IBRANCE [Suspect]
     Active Substance: PALBOCICLIB
     Indication: BREAST CANCER METASTATIC
     Dosage: 125 MG, UNK
  5. IBRANCE [Suspect]
     Active Substance: PALBOCICLIB
     Dosage: 100 MG, ONCE A DAY
  6. DULOXETINE. [Concomitant]
     Active Substance: DULOXETINE
     Dosage: UNK

REACTIONS (6)
  - Asthenia [Unknown]
  - Investigation abnormal [Unknown]
  - Iron deficiency [Recovering/Resolving]
  - Fatigue [Unknown]
  - Anaemia [Unknown]
  - Haemoglobin decreased [Recovering/Resolving]
